FAERS Safety Report 12217044 (Version 1)
Quarter: 2016Q1

REPORT INFORMATION
  Report Type: Spontaneous
  Country: US (occurrence: None)
  Receive Date: 20160328
  Receipt Date: 20160328
  Transmission Date: 20160526
  Serious: Yes (Other)
  Sender: FDA-Public Use
  Company Number: None

PATIENT
  Age: 44 Year
  Sex: Female
  Weight: 54.43 kg

DRUGS (14)
  1. PROZAC [Concomitant]
     Active Substance: FLUOXETINE HYDROCHLORIDE
  2. TYLENOL, EXTRA STRENGTH [Concomitant]
  3. LURASIDONE HCL [Suspect]
     Active Substance: LURASIDONE
     Indication: BIPOLAR DISORDER
     Route: 048
     Dates: start: 20150929, end: 20151005
  4. CONCERTA [Concomitant]
     Active Substance: METHYLPHENIDATE HYDROCHLORIDE
  5. LAMICTAL [Concomitant]
     Active Substance: LAMOTRIGINE
  6. TRAZODONE [Concomitant]
     Active Substance: TRAZODONE HYDROCHLORIDE
  7. VITAMIN D3 [Concomitant]
     Active Substance: CHOLECALCIFEROL
  8. LEVOTHYROXINE. [Concomitant]
     Active Substance: LEVOTHYROXINE
  9. ALEVE [Concomitant]
     Active Substance: NAPROXEN SODIUM
  10. CLONOZEPAM [Concomitant]
  11. PAMPRIN [Concomitant]
     Active Substance: IBUPROFEN
  12. ZYPREXA [Concomitant]
     Active Substance: OLANZAPINE
  13. MULTI VIT [Concomitant]
  14. FREEZEIT [Concomitant]

REACTIONS (6)
  - Rash erythematous [None]
  - Major depression [None]
  - Rash macular [None]
  - Therapy cessation [None]
  - Pruritus [None]
  - Contusion [None]

NARRATIVE: CASE EVENT DATE: 20151001
